FAERS Safety Report 26128162 (Version 2)
Quarter: 2025Q4

REPORT INFORMATION
  Report Type: Spontaneous
  Country: US (occurrence: US)
  Receive Date: 20251207
  Receipt Date: 20251208
  Transmission Date: 20260117
  Serious: No
  Sender: Steriscience PTE
  Company Number: US-STERISCIENCE B.V.-2025-ST-001570

PATIENT
  Age: 71 Year
  Sex: Female
  Weight: 60.771 kg

DRUGS (1)
  1. FOSAPREPITANT [Suspect]
     Active Substance: FOSAPREPITANT
     Indication: Product used for unknown indication
     Dosage: UNK, INJECTABLE, PRODUCT DETAILS 70121-2631-1, 150/50 MG
     Route: 017
     Dates: start: 20251007, end: 20251007

REACTIONS (2)
  - Vomiting [None]
  - Fatigue [None]

NARRATIVE: CASE EVENT DATE: 20251007
